FAERS Safety Report 7000064-5 (Version None)
Quarter: 2010Q3

REPORT INFORMATION
  Report Type: 
  Country: None (occurrence: None)
  Receive Date: 20100920
  Receipt Date: 20090825
  Transmission Date: 20110219
  Serious: No
  Sender: FDA-Public Use
  Company Number: US-ASTRAZENECA-2009SE09730

PATIENT
  Age: 59 Year
  Sex: Female

DRUGS (2)
  1. SEROQUEL XR [Suspect]
     Indication: INSOMNIA
     Route: 048
     Dates: start: 20090801, end: 20090801
  2. SEROQUEL XR [Suspect]
     Route: 048
     Dates: start: 20090801

REACTIONS (6)
  - DRUG EFFECT INCREASED [None]
  - FEELING ABNORMAL [None]
  - MIGRAINE [None]
  - PAIN [None]
  - RESTLESS LEGS SYNDROME [None]
  - VISUAL IMPAIRMENT [None]
